FAERS Safety Report 12159991 (Version 4)
Quarter: 2016Q2

REPORT INFORMATION
  Report Type: Report from Study
  Country: CO (occurrence: CO)
  Receive Date: 20160308
  Receipt Date: 20160409
  Transmission Date: 20160815
  Serious: Yes (Hospitalization, Other)
  Sender: FDA-Public Use
  Company Number: CO-ABBVIE-16K-036-1553560-00

PATIENT
  Age: 57 Year
  Sex: Male
  Weight: 66 kg

DRUGS (2)
  1. FUROSEMIDE. [Concomitant]
     Active Substance: FUROSEMIDE
     Indication: PRODUCT USED FOR UNKNOWN INDICATION
  2. HUMIRA [Suspect]
     Active Substance: ADALIMUMAB
     Indication: ANKYLOSING SPONDYLITIS
     Route: 058
     Dates: start: 20120629, end: 20160115

REACTIONS (15)
  - Ankylosing spondylitis [Not Recovered/Not Resolved]
  - Ascites [Recovering/Resolving]
  - Abdominal distension [Not Recovered/Not Resolved]
  - Abdominal pain [Not Recovered/Not Resolved]
  - Pleural effusion [Recovering/Resolving]
  - Cholelithiasis [Not Recovered/Not Resolved]
  - Weight decreased [Not Recovered/Not Resolved]
  - Nephrolithiasis [Recovering/Resolving]
  - Hypothyroidism [Recovering/Resolving]
  - Jaundice [Not Recovered/Not Resolved]
  - Renal cyst [Recovering/Resolving]
  - Tuberculin test positive [Recovering/Resolving]
  - Abdominal pain [Not Recovered/Not Resolved]
  - Blood parathyroid hormone abnormal [Unknown]
  - Intestinal obstruction [Recovering/Resolving]

NARRATIVE: CASE EVENT DATE: 20150422
